FAERS Safety Report 24365864 (Version 1)
Quarter: 2024Q3

REPORT INFORMATION
  Report Type: Report from Study
  Country: US (occurrence: US)
  Receive Date: 20240926
  Receipt Date: 20240926
  Transmission Date: 20241017
  Serious: Yes (Other)
  Sender: ROCHE
  Company Number: US-ROCHE-10000089583

PATIENT
  Age: 77 Year
  Sex: Male

DRUGS (1)
  1. ENSPRYNG [Suspect]
     Active Substance: SATRALIZUMAB-MWGE
     Indication: Myelitis
     Dosage: INJECT 120MG SUBCUTANEOUSLY EVERY 4 WEEK(S)
     Route: 058

REACTIONS (1)
  - Neuromyelitis optica spectrum disorder [Unknown]
